FAERS Safety Report 5589562-9 (Version None)
Quarter: 2008Q1

REPORT INFORMATION
  Report Type: 
  Country: None (occurrence: None)
  Receive Date: 20080114
  Receipt Date: 20080107
  Transmission Date: 20080703
  Serious: Yes (Hospitalization)
  Sender: FDA-Public Use
  Company Number: US-GENENTECH-252544

PATIENT
  Sex: Female
  Weight: 56 kg

DRUGS (2)
  1. RITUXAN [Suspect]
     Indication: CHRONIC LYMPHOCYTIC LEUKAEMIA
     Dosage: 375 MG/M2, UNK
     Route: 041
     Dates: start: 20051103, end: 20060406
  2. FLUDARABINE PHOSPHATE [Suspect]
     Indication: CHRONIC LYMPHOCYTIC LEUKAEMIA
     Dosage: 25 MG/M2, QDX3D
     Route: 041
     Dates: start: 20051103, end: 20060408

REACTIONS (2)
  - PROGRESSIVE MULTIFOCAL LEUKOENCEPHALOPATHY [None]
  - TREMOR [None]
